FAERS Safety Report 20064895 (Version 1)
Quarter: 2021Q4

REPORT INFORMATION
  Report Type: Spontaneous
  Country: US (occurrence: None)
  Receive Date: 20211112
  Receipt Date: 20211112
  Transmission Date: 20220303
  Serious: No
  Sender: FDA-Public Use
  Company Number: 2021A792584

PATIENT
  Sex: Female
  Weight: 62.1 kg

DRUGS (1)
  1. XIGDUO XR [Suspect]
     Active Substance: DAPAGLIFLOZIN PROPANEDIOL\METFORMIN HYDROCHLORIDE
     Indication: Diabetes mellitus
     Dosage: 5 MG-850 MG FROM CANADA.
     Route: 048
     Dates: start: 20211003

REACTIONS (1)
  - Vulvovaginal pruritus [Not Recovered/Not Resolved]
